FAERS Safety Report 21305481 (Version 1)
Quarter: 2022Q3

REPORT INFORMATION
  Report Type: Spontaneous
  Country: FR (occurrence: FR)
  Receive Date: 20220908
  Receipt Date: 20220908
  Transmission Date: 20221027
  Serious: Yes (Hospitalization)
  Sender: FDA-Public Use
  Company Number: None

PATIENT
  Age: 66 Year
  Sex: Female
  Weight: 72 kg

DRUGS (2)
  1. CIPROFLOXACIN HYDROCHLORIDE [Suspect]
     Active Substance: CIPROFLOXACIN HYDROCHLORIDE
     Indication: Osteitis
     Dosage: CHLORHYDRATE DE CIPROFLOXACINE , UNIT DOSE : 1 GRAM   , FREQUENCY TIME : 1 DAY   , DURATION : 17 DAY
     Dates: start: 20220707, end: 20220724
  2. PIPERACILLIN SODIUM\TAZOBACTAM SODIUM [Suspect]
     Active Substance: PIPERACILLIN SODIUM\TAZOBACTAM SODIUM
     Indication: Osteitis
     Dosage: UNIT DOSE : 12 GRAM  , FREQUENCY TIME : 1 DAY   , DURATION : 17 DAY
     Dates: start: 20220707, end: 20220724

REACTIONS (2)
  - Hepatitis cholestatic [Recovering/Resolving]
  - Hepatic cytolysis [Recovering/Resolving]

NARRATIVE: CASE EVENT DATE: 20220722
